FAERS Safety Report 6310489-9 (Version None)
Quarter: 2009Q3

REPORT INFORMATION
  Report Type: 
  Country: None (occurrence: None)
  Receive Date: 20090814
  Receipt Date: 20090802
  Transmission Date: 20100115
  Serious: Yes (Hospitalization)
  Sender: FDA-Public Use
  Company Number: AU-MYLANLABS-2009S1013818

PATIENT
  Age: 73 Year
  Sex: Female

DRUGS (7)
  1. ROXITHROMYCIN [Interacting]
     Indication: UPPER RESPIRATORY TRACT INFECTION
  2. SIMVASTATIN [Interacting]
     Indication: BLOOD CHOLESTEROL
  3. GEMFIBROZIL [Suspect]
     Indication: BLOOD CHOLESTEROL
  4. DILTIAZEM [Interacting]
  5. RAMIPRIL [Concomitant]
  6. CHLOROTHIAZIDE [Concomitant]
  7. ASPIRIN [Concomitant]

REACTIONS (3)
  - DRUG INTERACTION [None]
  - MYOPATHY [None]
  - RHABDOMYOLYSIS [None]
